FAERS Safety Report 21446748 (Version 1)
Quarter: 2022Q4

REPORT INFORMATION
  Report Type: Spontaneous
  Country: US (occurrence: None)
  Receive Date: 20221011
  Receipt Date: 20221011
  Transmission Date: 20230113
  Serious: Yes (Hospitalization)
  Sender: FDA-Public Use
  Company Number: None

PATIENT
  Age: 73 Year
  Sex: Male
  Weight: 131 kg

DRUGS (2)
  1. DICLOFENAC SODIUM [Suspect]
     Active Substance: DICLOFENAC SODIUM
     Indication: Pain
     Dosage: 75 MG EVERY DAY PO?
     Route: 048
     Dates: start: 20180406, end: 20220301
  2. IBUPROFEN [Suspect]
     Active Substance: IBUPROFEN
     Indication: Pain
     Dosage: 200 MG PRN PO?
     Route: 048

REACTIONS (1)
  - Gastric ulcer perforation [None]

NARRATIVE: CASE EVENT DATE: 20220228
